FAERS Safety Report 18022660 (Version 2)
Quarter: 2020Q3

REPORT INFORMATION
  Report Type: Report from Study
  Country: US (occurrence: US)
  Receive Date: 20200714
  Receipt Date: 20200818
  Transmission Date: 20201103
  Serious: Yes (Death)
  Sender: FDA-Public Use
  Company Number: US-EXELIXIS-CABO-20031230

PATIENT
  Sex: Female
  Weight: 117.5 kg

DRUGS (1)
  1. CABOMETYX [Suspect]
     Active Substance: CABOZANTINIB S-MALATE
     Indication: METASTATIC RENAL CELL CARCINOMA
     Dosage: 60 MG, QD
     Route: 048
     Dates: start: 202006

REACTIONS (4)
  - Hepatic failure [Fatal]
  - Malignant neoplasm progression [Fatal]
  - Renal failure [Fatal]
  - Respiratory failure [Fatal]
